FAERS Safety Report 10135851 (Version 1)
Quarter: 2014Q2

REPORT INFORMATION
  Report Type: Spontaneous
  Country: ES (occurrence: ES)
  Receive Date: 20140428
  Receipt Date: 20140428
  Transmission Date: 20141212
  Serious: Yes (Death)
  Sender: FDA-Public Use
  Company Number: PHHY2014ES050770

PATIENT
  Sex: Female

DRUGS (6)
  1. CICLOSPORIN [Suspect]
     Indication: APLASIA
  2. PREDNISONE [Suspect]
     Indication: APLASIA
  3. GRANULOCYTE COLONY-STIMULATING FACTOR NOS [Suspect]
     Indication: APLASIA
  4. ANTITHYMOCYTE IMMUNOGLOBULIN [Suspect]
     Indication: APLASIA
     Dosage: 7.5 MG/KG, UNK
  5. CYCLOPHOSPHAMIDE [Concomitant]
     Dosage: 120 MG/KG, UNK
  6. FLUDARABINE [Concomitant]
     Dosage: 150 MG/KG, UNK

REACTIONS (2)
  - Abdominal sepsis [Fatal]
  - Drug ineffective [Unknown]
